FAERS Safety Report 20610383 (Version 1)
Quarter: 2022Q1

REPORT INFORMATION
  Report Type: Spontaneous
  Country: FR (occurrence: FR)
  Receive Date: 20220318
  Receipt Date: 20220318
  Transmission Date: 20220423
  Serious: Yes (Congenital Anomaly, Other)
  Sender: FDA-Public Use
  Company Number: FR-ABBVIE-22K-056-4321319-00

PATIENT

DRUGS (1)
  1. VALPROATE SODIUM [Suspect]
     Active Substance: VALPROATE SODIUM
     Indication: Maternal exposure timing unspecified
     Route: 064

REACTIONS (18)
  - Foetal anticonvulsant syndrome [Unknown]
  - Joint laxity [Unknown]
  - Foot deformity [Unknown]
  - Language disorder [Unknown]
  - Behaviour disorder [Unknown]
  - Personal relationship issue [Unknown]
  - Psychomotor retardation [Unknown]
  - Spine malformation [Unknown]
  - Plagiocephaly [Unknown]
  - Psychotic disorder [Unknown]
  - Ear, nose and throat disorder [Unknown]
  - Enuresis [Unknown]
  - Developmental delay [Unknown]
  - Autism spectrum disorder [Unknown]
  - Disturbance in attention [Unknown]
  - Dyspepsia [Unknown]
  - Incontinence [Unknown]
  - Foetal exposure during pregnancy [Unknown]

NARRATIVE: CASE EVENT DATE: 20170126
